FAERS Safety Report 22946617 (Version 3)
Quarter: 2024Q3

REPORT INFORMATION
  Report Type: Spontaneous
  Country: US (occurrence: US)
  Receive Date: 20230915
  Receipt Date: 20240909
  Transmission Date: 20241016
  Serious: Yes (Other)
  Sender: CSL BEHRING
  Company Number: US-BEH-2023163126

PATIENT
  Age: 63 Year
  Sex: Female

DRUGS (20)
  1. HAEGARDA [Suspect]
     Active Substance: HUMAN C1-ESTERASE INHIBITOR
     Indication: Hereditary angioedema
     Dosage: 4000 INTERNATIONAL UNIT, BIW
     Route: 058
  2. HAEGARDA [Suspect]
     Active Substance: HUMAN C1-ESTERASE INHIBITOR
     Indication: Prophylaxis
     Dosage: 4000 IU, BIW (EVERY 3-4 DAYS)
     Route: 058
  3. CELEBREX [Concomitant]
     Active Substance: CELECOXIB
  4. ORLADEYO [Concomitant]
     Active Substance: BEROTRALSTAT HYDROCHLORIDE
  5. AMITRIPTYLINE HYDROCHLORIDE [Concomitant]
     Active Substance: AMITRIPTYLINE HYDROCHLORIDE
  6. AMLODIPINE BESYLATE [Concomitant]
     Active Substance: AMLODIPINE BESYLATE
  7. ATENOLOL [Concomitant]
     Active Substance: ATENOLOL
  8. ATORVASTATIN [Concomitant]
     Active Substance: ATORVASTATIN
  9. CLONAZEPAM [Concomitant]
     Active Substance: CLONAZEPAM
  10. ENBREL [Concomitant]
     Active Substance: ETANERCEPT
  11. GABAPENTIN [Concomitant]
     Active Substance: GABAPENTIN
  12. HYDROCHLOROTHIAZIDE [Concomitant]
     Active Substance: HYDROCHLOROTHIAZIDE
  13. JANUMET XR [Concomitant]
     Active Substance: METFORMIN HYDROCHLORIDE\SITAGLIPTIN PHOSPHATE
  14. NAPROXEN [Concomitant]
     Active Substance: NAPROXEN
  15. NUCYNTA [Concomitant]
     Active Substance: TAPENTADOL HYDROCHLORIDE
  16. OXYCODONE [Concomitant]
     Active Substance: OXYCODONE
  17. SEROQUEL [Concomitant]
     Active Substance: QUETIAPINE FUMARATE
  18. VASCEPA [Concomitant]
     Active Substance: ICOSAPENT ETHYL
  19. CEPHALEXIN [Concomitant]
     Active Substance: CEPHALEXIN
  20. DICLOFENAC SODIUM [Concomitant]
     Active Substance: DICLOFENAC\DICLOFENAC SODIUM

REACTIONS (3)
  - Hereditary angioedema [Unknown]
  - Hereditary angioedema [Recovered/Resolved]
  - Product dose omission issue [Not Recovered/Not Resolved]

NARRATIVE: CASE EVENT DATE: 20240901
